FAERS Safety Report 4875310-4 (Version None)
Quarter: 2006Q1

REPORT INFORMATION
  Report Type: 
  Country: None (occurrence: None)
  Receive Date: 20060104
  Receipt Date: 20051222
  Transmission Date: 20060701
  Serious: Yes (Life-Threatening, Hospitalization)
  Sender: FDA-Public Use
  Company Number: TCI2005A04881

PATIENT
  Age: 74 Year
  Sex: Male

DRUGS (7)
  1. LEUPROLIDE ACETATE [Suspect]
     Indication: PROSTATE CANCER
     Dosage: 3.75 MG (3.75 MG, 1 IN 28 D) SUBCUTANEOUS
     Route: 058
     Dates: start: 20011101, end: 20050823
  2. FLUTAMIDE [Suspect]
     Indication: PROSTATE CANCER
     Dosage: 375 MG (375 MG, 1 D) PER ORAL
     Route: 048
     Dates: start: 20050809, end: 20051003
  3. MOBIC [Suspect]
     Indication: PROSTATE CANCER
     Dosage: 10 MG (10 MG, 1 D) PER ORAL
     Route: 048
     Dates: start: 20050809, end: 20051102
  4. DICLOFENAC SODIUM [Suspect]
     Indication: PROSTATE CANCER
     Dosage: 75 MG (75 MG, 1 D) PER RECTAL
     Route: 054
     Dates: start: 20050809
  5. FERROUS SULFATE (PREPARATION FOR ORAL USE (NOS)) [Concomitant]
  6. MOSAPRIDE CITRATE (PREPARATION FOR ORAL USE (NOS)) [Concomitant]
  7. TAMSULOSIN HCL [Concomitant]

REACTIONS (14)
  - ABDOMINAL PAIN [None]
  - APLASTIC ANAEMIA [None]
  - FATIGUE [None]
  - FLATULENCE [None]
  - HAEMOLYTIC ANAEMIA [None]
  - HERPES VIRUS INFECTION [None]
  - LABORATORY TEST ABNORMAL [None]
  - METASTASES TO BONE [None]
  - OEDEMA MOUTH [None]
  - ORAL INTAKE REDUCED [None]
  - PLATELET COUNT ABNORMAL [None]
  - PYREXIA [None]
  - TUMOUR MARKER INCREASED [None]
  - VOMITING [None]
